FAERS Safety Report 6339806-0 (Version None)
Quarter: 2009Q3

REPORT INFORMATION
  Report Type: 
  Country: None (occurrence: None)
  Receive Date: 20090903
  Receipt Date: 20090826
  Transmission Date: 20100115
  Serious: Yes (Other)
  Sender: FDA-Public Use
  Company Number: PHEH2009US02214

PATIENT
  Sex: Female
  Weight: 70.295 kg

DRUGS (8)
  1. RECLAST [Suspect]
     Indication: OSTEOPOROSIS
     Dosage: 5 MG, ONCE/SINGLE
     Dates: start: 20090130
  2. DIOVAN [Concomitant]
     Dosage: 320 MG, UNK
  3. AMLODIPINE [Concomitant]
     Dosage: 5 MG, UNK
  4. CALCIUM WITH VITAMIN D [Concomitant]
  5. VITAMIN B-12 [Concomitant]
  6. ASPIRIN [Concomitant]
     Dosage: 81 MG, UNK
  7. VITAMINS NOS [Concomitant]
  8. ZANEX [Concomitant]
     Dosage: 0.25 MG, UNK

REACTIONS (11)
  - AMNESIA [None]
  - BLOOD PRESSURE FLUCTUATION [None]
  - DIZZINESS [None]
  - EYE DISORDER [None]
  - GAIT DISTURBANCE [None]
  - GINGIVITIS [None]
  - HEART RATE INCREASED [None]
  - PAIN IN JAW [None]
  - PALPITATIONS [None]
  - QUALITY OF LIFE DECREASED [None]
  - SENSATION OF HEAVINESS [None]
